FAERS Safety Report 6295052-0 (Version None)
Quarter: 2009Q3

REPORT INFORMATION
  Report Type: 
  Country: None (occurrence: None)
  Receive Date: 20090803
  Receipt Date: 20090722
  Transmission Date: 20100115
  Serious: Yes (Other)
  Sender: FDA-Public Use
  Company Number: US-ELI_LILLY_AND_COMPANY-US200907004826

PATIENT
  Sex: Male

DRUGS (4)
  1. XIGRIS [Suspect]
  2. DORIBAX [Concomitant]
  3. ZYVOX [Concomitant]
  4. ERAXIS [Concomitant]

REACTIONS (1)
  - PULMONARY EMBOLISM [None]
